FAERS Safety Report 9278132 (Version 1)
Quarter: 2013Q2

REPORT INFORMATION
  Report Type: Spontaneous
  Country: US (occurrence: None)
  Receive Date: 20130503
  Receipt Date: 20130503
  Transmission Date: 20140414
  Serious: Yes (Other)
  Sender: FDA-Public Use
  Company Number: None

PATIENT
  Sex: Female
  Weight: 50 kg

DRUGS (2)
  1. REMBRANDT 2-HOUR WHITE KIT [Suspect]
     Indication: TOOTH DISCOLOURATION
     Dosage: 4 APP IN 2 HOUR
     Route: 004
     Dates: start: 20130225, end: 20130225
  2. FLINTSTONE VITAMINS [Concomitant]

REACTIONS (2)
  - Tooth injury [None]
  - Tongue disorder [None]
